FAERS Safety Report 18793502 (Version 1)
Quarter: 2021Q1

REPORT INFORMATION
  Report Type: Spontaneous
  Country: US (occurrence: US)
  Receive Date: 20210126
  Receipt Date: 20210126
  Transmission Date: 20210419
  Serious: Yes (Hospitalization)
  Sender: FDA-Public Use
  Company Number: None

PATIENT
  Age: 78 Year
  Sex: Male
  Weight: 112.94 kg

DRUGS (1)
  1. LISINOPRIL (LISINOPRIL 20MG TAB) [Suspect]
     Active Substance: LISINOPRIL
     Indication: HYPERTENSION
     Route: 048
     Dates: start: 20200917, end: 20200929

REACTIONS (6)
  - Asthenia [None]
  - Acute kidney injury [None]
  - Dyspnoea [None]
  - Hypotension [None]
  - Fatigue [None]
  - Troponin increased [None]

NARRATIVE: CASE EVENT DATE: 20200923
